APPROVED DRUG PRODUCT: AMINOSYN 3.5% M
Active Ingredient: AMINO ACIDS; MAGNESIUM ACETATE; PHOSPHORIC ACID; POTASSIUM ACETATE; SODIUM CHLORIDE
Strength: 3.5%;21MG/100ML;40MG/100ML;128MG/100ML;234MG/100ML
Dosage Form/Route: INJECTABLE;INJECTION
Application: N017789 | Product #003
Applicant: ICU MEDICAL INC
Approved: Approved Prior to Jan 1, 1982 | RLD: No | RS: No | Type: DISCN